FAERS Safety Report 16727160 (Version 3)
Quarter: 2019Q4

REPORT INFORMATION
  Report Type: Spontaneous
  Country: US (occurrence: US)
  Receive Date: 20190822
  Receipt Date: 20191018
  Transmission Date: 20200122
  Serious: No
  Sender: FDA-Public Use
  Company Number: US-JNJFOC-20190818835

PATIENT
  Sex: Female
  Weight: 59.47 kg

DRUGS (1)
  1. WOMENS ROGAINE UNSCENTED [Suspect]
     Active Substance: MINOXIDIL
     Indication: ALOPECIA
     Dosage: USE A LOT
     Route: 061

REACTIONS (2)
  - Product formulation issue [Unknown]
  - Product use in unapproved indication [Unknown]
